FAERS Safety Report 7071232-1 (Version None)
Quarter: 2010Q4

REPORT INFORMATION
  Report Type: 
  Country: None (occurrence: None)
  Receive Date: 20101028
  Receipt Date: 20101028
  Transmission Date: 20110411
  Serious: No
  Sender: FDA-Public Use
  Company Number: None

PATIENT
  Age: 1 Year
  Sex: Female
  Weight: 9.9791 kg

DRUGS (2)
  1. TEETHING TABLETS UNKNOWN HYLAND [Suspect]
     Indication: TEETHING
     Dosage: 2 TO 3 TABLETS 4 TIMES A DAY PO
     Route: 048
     Dates: start: 20101027, end: 20101027
  2. TEETHING TABLETS UNKNOWN HYLAND [Suspect]

REACTIONS (2)
  - BODY TEMPERATURE INCREASED [None]
  - CONVULSION [None]
